FAERS Safety Report 18405281 (Version 1)
Quarter: 2020Q4

REPORT INFORMATION
  Report Type: Report from Study
  Country: AT (occurrence: AT)
  Receive Date: 20201020
  Receipt Date: 20201020
  Transmission Date: 20210114
  Serious: Yes (Hospitalization)
  Sender: FDA-Public Use
  Company Number: AT-MYLANLABS-2019M1037835

PATIENT
  Age: 78 Year
  Sex: Female
  Weight: 54 kg

DRUGS (15)
  1. FOSINOPRIL [Concomitant]
     Active Substance: FOSINOPRIL
     Indication: HYPERTENSION
     Dosage: UNK
  2. GLASDEGIB [Suspect]
     Active Substance: GLASDEGIB
     Dosage: UNK
     Dates: start: 20190403, end: 20190423
  3. GUTTALAX [SODIUM  PICOSULFATE] [Suspect]
     Active Substance: SODIUM PICOSULFATE
     Indication: CONSTIPATION
     Dosage: 10-20 DROPS, 1X/DAY
     Route: 048
  4. OLEOVIT                            /00056001/ [Concomitant]
     Indication: OSTEOPOROSIS
     Dosage: UNK
  5. AZACITIDINE. [Suspect]
     Active Substance: AZACITIDINE
     Indication: ACUTE MYELOID LEUKAEMIA
     Dosage: 120 MILLIGRAM, QD
     Route: 058
     Dates: start: 20170227
  6. GLASDEGIB [Suspect]
     Active Substance: GLASDEGIB
     Dosage: UNK UNK, QD
     Route: 048
     Dates: start: 20190227, end: 20190402
  7. GABATAL [Concomitant]
     Active Substance: GABAPENTIN
     Indication: HYPERTENSION
     Dosage: UNK
  8. AMPHO MORONAL [Concomitant]
     Active Substance: AMPHOTERICIN B
     Indication: INFECTION PROPHYLAXIS
     Dosage: UNK
     Dates: start: 201902
  9. AZACITIDINE. [Suspect]
     Active Substance: AZACITIDINE
     Dosage: DAILY FOR 7 DAYS (120 MG, QD)
     Route: 058
     Dates: start: 20190227
  10. GLASDEGIB [Suspect]
     Active Substance: GLASDEGIB
     Indication: ACUTE MYELOID LEUKAEMIA
     Dosage: 100 MILLIGRAM
     Dates: start: 20190227, end: 20190402
  11. THROMBO ASS [Concomitant]
     Active Substance: ASPIRIN
     Indication: THROMBOSIS PROPHYLAXIS
     Dosage: UNK
  12. OMEC [Concomitant]
     Active Substance: OMEPRAZOLE
     Indication: GASTROINTESTINAL DISORDER PROPHYLAXIS
     Dosage: UNK
  13. GABATAL [Concomitant]
     Active Substance: GABAPENTIN
     Indication: PAIN
  14. ZOFRAN [Concomitant]
     Active Substance: ONDANSETRON HYDROCHLORIDE
     Indication: PROPHYLAXIS OF NAUSEA AND VOMITING
     Dosage: UNK
     Dates: start: 20190327, end: 20190401
  15. GLASDEGIB [Suspect]
     Active Substance: GLASDEGIB
     Dosage: 75 MILLIGRAM, QD
     Route: 048
     Dates: start: 20190424

REACTIONS (5)
  - Infection [Recovered/Resolved]
  - Creatinine renal clearance decreased [Recovered/Resolved]
  - Diarrhoea [Recovered/Resolved]
  - Circulatory collapse [Recovered/Resolved]
  - Renal failure [Unknown]

NARRATIVE: CASE EVENT DATE: 20190401
